FAERS Safety Report 11246446 (Version 1)
Quarter: 2015Q3

REPORT INFORMATION
  Report Type: Spontaneous
  Country: US (occurrence: None)
  Receive Date: 20150706
  Receipt Date: 20150706
  Transmission Date: 20151125
  Serious: Yes (Life-Threatening, Disabling)
  Sender: FDA-Public Use
  Company Number: None

PATIENT
  Age: 53 Year
  Sex: Female
  Weight: 64.41 kg

DRUGS (4)
  1. MULTIVITAMIN [Concomitant]
     Active Substance: VITAMINS
  2. ATORVASTATIN 10 MG [Suspect]
     Active Substance: ATORVASTATIN
     Indication: BLOOD CHOLESTEROL INCREASED
     Route: 048
     Dates: start: 20150617, end: 20150617
  3. ATORVASTATIN [Concomitant]
     Active Substance: ATORVASTATIN
  4. TUMS EX [Suspect]
     Active Substance: CALCIUM CARBONATE
     Indication: DYSPEPSIA
     Dosage: 2 TO 4 TABLETS?AS NEEDED?TAKEN BY MOUTH
     Route: 048
     Dates: start: 20150617, end: 20150617

REACTIONS (8)
  - Inappropriate schedule of drug administration [None]
  - Arthralgia [None]
  - Muscular weakness [None]
  - Musculoskeletal pain [None]
  - Dizziness [None]
  - Musculoskeletal chest pain [None]
  - Dyspepsia [None]
  - Neck pain [None]

NARRATIVE: CASE EVENT DATE: 20150617
